FAERS Safety Report 15034127 (Version 1)
Quarter: 2018Q2

REPORT INFORMATION
  Report Type: Spontaneous
  Country: JP (occurrence: JP)
  Receive Date: 20180620
  Receipt Date: 20180620
  Transmission Date: 20180711
  Serious: Yes (Other)
  Sender: FDA-Public Use
  Company Number: JP-SUN PHARMACEUTICAL INDUSTRIES LTD-2018RR-176039

PATIENT
  Age: 56 Year
  Sex: Female
  Weight: 34 kg

DRUGS (1)
  1. OLANZAPINE. [Suspect]
     Active Substance: OLANZAPINE
     Indication: PSYCHIATRIC SYMPTOM
     Dosage: 5 MG, DAILY
     Route: 065
     Dates: start: 201701

REACTIONS (2)
  - Decubitus ulcer [Recovered/Resolved]
  - Parkinsonism [Recovering/Resolving]
